FAERS Safety Report 9144934 (Version 2)
Quarter: 2013Q1

REPORT INFORMATION
  Report Type: Spontaneous
  Country: US (occurrence: US)
  Receive Date: 20130307
  Receipt Date: 20130329
  Transmission Date: 20140127
  Serious: Yes (Hospitalization)
  Sender: FDA-Public Use
  Company Number: US-BIOGENIDEC-2013BI019702

PATIENT
  Sex: Male

DRUGS (1)
  1. AVONEX [Suspect]
     Indication: MULTIPLE SCLEROSIS
     Route: 030
     Dates: start: 2007, end: 2010

REACTIONS (4)
  - Multiple sclerosis relapse [Recovered/Resolved]
  - Influenza like illness [Unknown]
  - Multiple sclerosis relapse [Recovered/Resolved]
  - Memory impairment [Not Recovered/Not Resolved]
